FAERS Safety Report 7119626-X (Version None)
Quarter: 2010Q4

REPORT INFORMATION
  Report Type: 
  Country: None (occurrence: None)
  Receive Date: 20101123
  Receipt Date: 20101116
  Transmission Date: 20110411
  Serious: Yes (Hospitalization)
  Sender: FDA-Public Use
  Company Number: FR-BRISTOL-MYERS SQUIBB COMPANY-15396153

PATIENT
  Age: 4 Year
  Sex: Female

DRUGS (1)
  1. CORGARD [Suspect]
     Indication: LONG QT SYNDROME
     Route: 048
     Dates: start: 20091201, end: 20100513

REACTIONS (8)
  - AGITATION [None]
  - ECHOLALIA [None]
  - HYPERTONIA [None]
  - HYPOGLYCAEMIA [None]
  - HYPOTONIA [None]
  - INSULIN C-PEPTIDE DECREASED [None]
  - MYDRIASIS [None]
  - URINARY INCONTINENCE [None]
